FAERS Safety Report 8120182-8 (Version None)
Quarter: 2012Q1

REPORT INFORMATION
  Report Type: 
  Country: None (occurrence: None)
  Receive Date: 20120207
  Receipt Date: 20120130
  Transmission Date: 20120608
  Serious: Yes (Disabling, Other)
  Sender: FDA-Public Use
  Company Number: US-BAYER-2011-067908

PATIENT
  Age: 23 Year
  Sex: Female
  Weight: 116.1 kg

DRUGS (4)
  1. YAZ [Suspect]
     Dosage: UNK
     Dates: start: 20090801, end: 20091201
  2. MOTRIN [Concomitant]
     Dosage: UNK
     Dates: start: 20091115, end: 20100701
  3. ZOLOFT [Concomitant]
     Indication: POSTPARTUM DEPRESSION
     Dosage: UNK
     Dates: start: 20090801, end: 20100201
  4. PENICILLIN [Concomitant]
     Dosage: UNK
     Dates: start: 20090723

REACTIONS (8)
  - CHOLELITHIASIS [None]
  - QUALITY OF LIFE DECREASED [None]
  - CHOLECYSTITIS CHRONIC [None]
  - MENTAL DISORDER [None]
  - ABDOMINAL PAIN [None]
  - PAIN [None]
  - INJURY [None]
  - DEFORMITY [None]
